FAERS Safety Report 8929203 (Version 4)
Quarter: 2013Q4

REPORT INFORMATION
  Report Type: Spontaneous
  Country: JP (occurrence: JP)
  Receive Date: 20121127
  Receipt Date: 20131107
  Transmission Date: 20140711
  Serious: Yes (Death, Hospitalization, Other)
  Sender: FDA-Public Use
  Company Number: PHHY2012JP106316

PATIENT
  Age: 69 Year
  Sex: Male

DRUGS (6)
  1. AMANTADINE [Suspect]
     Indication: PARKINSON^S DISEASE
     Dosage: 300 MG
  2. AMANTADINE [Suspect]
     Dosage: 100 MG DAILY
     Route: 048
     Dates: start: 2007, end: 20100114
  3. AMANTADINE [Suspect]
     Dosage: 100 MG DAILY
     Route: 048
     Dates: start: 20100124, end: 20100925
  4. LEVODOPA [Concomitant]
     Indication: PARKINSON^S DISEASE
     Dosage: 300 MG
  5. NEODOPASOL [Concomitant]
     Dosage: 300 MG
     Route: 048
     Dates: start: 20100918
  6. SEROQUEL [Concomitant]
     Dosage: 200 MG
     Route: 048
     Dates: start: 20100921

REACTIONS (32)
  - Cardio-respiratory arrest [Fatal]
  - Multi-organ failure [Fatal]
  - Neuroleptic malignant syndrome [Fatal]
  - Myotonia [Fatal]
  - Loss of consciousness [Fatal]
  - Pneumonia aspiration [Fatal]
  - Hypertonia [Fatal]
  - Pyrexia [Fatal]
  - Hyperhidrosis [Fatal]
  - Delirium [Fatal]
  - Tachycardia [Fatal]
  - Altered state of consciousness [Fatal]
  - Blood creatine phosphokinase increased [Fatal]
  - Muscle rigidity [Fatal]
  - Tremor [Fatal]
  - Hallucination [Fatal]
  - Shock [Recovering/Resolving]
  - Septic shock [Recovering/Resolving]
  - Corneal degeneration [Not Recovered/Not Resolved]
  - Corneal disorder [Unknown]
  - Visual acuity reduced [Unknown]
  - Corneal oedema [Unknown]
  - Flat anterior chamber of eye [Unknown]
  - Parkinsonism [Unknown]
  - Renal disorder [Not Recovered/Not Resolved]
  - Disseminated intravascular coagulation [Not Recovered/Not Resolved]
  - Acute respiratory distress syndrome [Unknown]
  - Cerebellar infarction [Unknown]
  - Corneal opacity [Unknown]
  - General physical health deterioration [Unknown]
  - Lenticular opacities [Unknown]
  - Liver disorder [Not Recovered/Not Resolved]
